FAERS Safety Report 12485131 (Version 1)
Quarter: 2016Q2

REPORT INFORMATION
  Report Type: Spontaneous
  Country: AU (occurrence: AU)
  Receive Date: 20160621
  Receipt Date: 20160621
  Transmission Date: 20160815
  Serious: Yes (Hospitalization, Disabling, Other)
  Sender: FDA-Public Use
  Company Number: AU-ELI_LILLY_AND_COMPANY-AU201606004597

PATIENT
  Age: 71 Year
  Sex: Female

DRUGS (16)
  1. AMITRIPTYLINE [Concomitant]
     Active Substance: AMITRIPTYLINE
     Dosage: 10 MG, QD
     Route: 065
  2. CALCITRIOL. [Concomitant]
     Active Substance: CALCITRIOL
     Dosage: 0.5 UG, 2/W
     Route: 065
  3. SIMVASTATIN. [Concomitant]
     Active Substance: SIMVASTATIN
     Dosage: 20 MG, QD
     Route: 065
  4. ACETAMINOFEN [Concomitant]
     Active Substance: ACETAMINOPHEN
     Dosage: 1 G, QID
     Route: 065
  5. ASPIRIN                            /00002701/ [Concomitant]
     Active Substance: ASPIRIN
     Dosage: 100 MG, QD
     Route: 065
  6. IRBESARTAN. [Concomitant]
     Active Substance: IRBESARTAN
     Dosage: 150 MG, QD
     Route: 065
  7. EPOETIN LAMBDA [Concomitant]
     Dosage: 6000 U, 3/W
     Route: 042
  8. PANTOPRAZOLE [Concomitant]
     Active Substance: PANTOPRAZOLE SODIUM
     Dosage: 40 MG, BID
     Route: 065
  9. CALCIUM                            /02801801/ [Concomitant]
     Dosage: 1200 MG, TID
     Route: 065
  10. NALOXONE HCL W/OXYCODONE HCL [Concomitant]
     Dosage: 1 DF, BID
     Route: 065
  11. FOLIC ACID. [Concomitant]
     Active Substance: FOLIC ACID
     Dosage: 5 MG, QD
     Route: 065
  12. TEMAZEPAM. [Concomitant]
     Active Substance: TEMAZEPAM
     Dosage: 10 MG, QD
     Route: 065
  13. ASCORBIC ACID. [Concomitant]
     Active Substance: ASCORBIC ACID
     Dosage: 250 MG, 3/W
     Route: 065
  14. TRAMADOL. [Concomitant]
     Active Substance: TRAMADOL
     Dosage: 100 MG, QD
     Route: 065
  15. CYMBALTA [Suspect]
     Active Substance: DULOXETINE HYDROCHLORIDE
     Indication: DEPRESSION
     Dosage: 30 MG, QD
     Route: 048
     Dates: start: 201602
  16. VITAMIN B [Concomitant]
     Active Substance: VITAMIN B
     Dosage: 1 UNK, 3/W
     Route: 065

REACTIONS (5)
  - Suicidal ideation [Unknown]
  - Pain [Unknown]
  - Rotator cuff syndrome [Unknown]
  - Depression [Unknown]
  - Polymyalgia rheumatica [Unknown]

NARRATIVE: CASE EVENT DATE: 201603
